FAERS Safety Report 20907579 (Version 5)
Quarter: 2022Q3

REPORT INFORMATION
  Report Type: Spontaneous
  Country: US (occurrence: US)
  Receive Date: 20220602
  Receipt Date: 20220816
  Transmission Date: 20221027
  Serious: No
  Sender: FDA-Public Use
  Company Number: US-BRISTOL-MYERS SQUIBB COMPANY-2022-050857

PATIENT
  Age: 81 Year
  Sex: Female

DRUGS (4)
  1. REVLIMID [Suspect]
     Active Substance: LENALIDOMIDE
     Indication: Myelodysplastic syndrome
     Route: 048
     Dates: start: 20220225
  2. REVLIMID [Suspect]
     Active Substance: LENALIDOMIDE
     Dosage: FREQUENCY : TAKE 1 CAPSULE BY MOUTH ONCE DAILY AT BEDTIME. DO NOT BREAK, CHEW, OR OPEN CAPSULES
     Route: 048
     Dates: start: 20220523
  3. REVLIMID [Suspect]
     Active Substance: LENALIDOMIDE
     Route: 048
     Dates: start: 20220523
  4. REVLIMID [Suspect]
     Active Substance: LENALIDOMIDE
     Dosage: TAKE 1 CAPSULE BY MOUTH DAILY AT BEDTIME. DO NOT BREAK, CHEW OR OPEN CAPSULES
     Route: 048
     Dates: start: 20220523

REACTIONS (9)
  - Rhinorrhoea [Unknown]
  - Asthenia [Unknown]
  - Pruritus [Unknown]
  - Erythema [Unknown]
  - Pollakiuria [Unknown]
  - Rash [Unknown]
  - Seasonal allergy [Unknown]
  - Dyspnoea [Unknown]
  - Lacrimation increased [Unknown]
